FAERS Safety Report 6988221-5 (Version None)
Quarter: 2010Q3

REPORT INFORMATION
  Report Type: 
  Country: None (occurrence: None)
  Receive Date: 20100916
  Receipt Date: 20100907
  Transmission Date: 20110219
  Serious: Yes (Death, Hospitalization)
  Sender: FDA-Public Use
  Company Number: GXKR2010ES09312

PATIENT
  Age: 19 Year
  Sex: Female
  Weight: 75 kg

DRUGS (3)
  1. TOPIRAMATE [Suspect]
     Dosage: 200 MG - 0 - 100 MG
     Route: 065
  2. QUETIAPINE (NGX) [Suspect]
     Dosage: 300 MG, AT NIGHT
     Route: 065
  3. VENLAFAXINE HCL [Suspect]
     Dosage: 150 MG, IN THE MORNING
     Route: 065

REACTIONS (14)
  - BRAIN OEDEMA [None]
  - CARDIAC FAILURE [None]
  - CONVULSION [None]
  - ENDOTRACHEAL INTUBATION [None]
  - GASTRIC LAVAGE [None]
  - HYPOXIA [None]
  - METABOLIC ACIDOSIS [None]
  - NOSOCOMIAL INFECTION [None]
  - OVERDOSE [None]
  - PYREXIA [None]
  - RESPIRATORY DISORDER [None]
  - RHABDOMYOLYSIS [None]
  - SINUS TACHYCARDIA [None]
  - SOMNOLENCE [None]
